FAERS Safety Report 8564128-7 (Version None)
Quarter: 2012Q3

REPORT INFORMATION
  Report Type: 
  Country: None (occurrence: None)
  Receive Date: 20120723
  Receipt Date: 20120706
  Transmission Date: 20120928
  Serious: Yes (Death)
  Sender: FDA-Public Use
  Company Number: CIO12012662

PATIENT
  Sex: Male

DRUGS (2)
  1. DAYQUIL (DEXTROMETHORPHAN HYDROBROMIDE, GUAIFENESIN, PARACETAMOL, PSEU [Concomitant]
  2. NYQUIL COLD + FLU ALCOHOL 10% NIGHTTIME RELIEF, CHERRY FLAVOR(ETHANOL [Suspect]
     Indication: SINUS DISORDER
     Dosage: UNK, ORAL
     Route: 048

REACTIONS (2)
  - ACCIDENT [None]
  - BLOOD ALCOHOL INCREASED [None]
